FAERS Safety Report 6596693-3 (Version None)
Quarter: 2010Q1

REPORT INFORMATION
  Report Type: 
  Country: None (occurrence: None)
  Receive Date: 20100223
  Receipt Date: 20100215
  Transmission Date: 20100710
  Serious: Yes (Other)
  Sender: FDA-Public Use
  Company Number: FR-TEVA-224830ISR

PATIENT
  Age: 43 Year
  Sex: Male

DRUGS (4)
  1. CISPLATIN [Suspect]
     Indication: THYMOMA MALIGNANT
  2. FLUOROURACIL [Suspect]
     Indication: THYMOMA MALIGNANT
  3. DOCETAXEL [Suspect]
     Indication: THYMOMA MALIGNANT
  4. AFLIBERCEPT [Suspect]
     Indication: THYMOMA MALIGNANT

REACTIONS (1)
  - IMPAIRED HEALING [None]
